FAERS Safety Report 4871720-X (Version None)
Quarter: 2006Q1

REPORT INFORMATION
  Report Type: 
  Country: None (occurrence: None)
  Receive Date: 20060104
  Receipt Date: 20040921
  Transmission Date: 20060701
  Serious: No
  Sender: FDA-Public Use
  Company Number: US-BRISTOL-MYERS SQUIBB COMPANY-12708863

PATIENT
  Age: 66 Year
  Sex: Female
  Weight: 53 kg

DRUGS (4)
  1. TRAZODONE HCL [Suspect]
     Indication: MAJOR DEPRESSION
     Dosage: PHYSICIAN REPORTED DRUG WAS STOPPED IN RESPONSE TO EVENT IN ^?7/04^ AND CONTINUED TO ^PRESENT^
     Route: 048
     Dates: start: 20040112
  2. VERELAN [Concomitant]
  3. SYNTHROID [Concomitant]
  4. VALIUM [Concomitant]

REACTIONS (1)
  - NOREPINEPHRINE INCREASED [None]
